FAERS Safety Report 9681556 (Version 2)
Quarter: 2013Q4

REPORT INFORMATION
  Report Type: Spontaneous
  Country: SE (occurrence: SE)
  Receive Date: 20131111
  Receipt Date: 20131217
  Transmission Date: 20140711
  Serious: Yes (Other)
  Sender: FDA-Public Use
  Company Number: SE-ABBVIE-13P-150-1167747-00

PATIENT
  Age: 44 Year
  Sex: Female

DRUGS (3)
  1. KLACID [Suspect]
     Indication: GASTRITIS
     Dates: end: 20130517
  2. AMIMOX [Suspect]
     Indication: GASTRITIS
     Dates: end: 20130517
  3. NEXIUM [Suspect]
     Indication: GASTRITIS
     Dates: end: 20130517

REACTIONS (1)
  - Unevaluable event [Unknown]
